FAERS Safety Report 7340894-3 (Version None)
Quarter: 2011Q1

REPORT INFORMATION
  Report Type: 
  Country: None (occurrence: None)
  Receive Date: 20110309
  Receipt Date: 20100422
  Transmission Date: 20110831
  Serious: No
  Sender: FDA-Public Use
  Company Number: US-ABBOTT-10P-163-0637733-00

PATIENT
  Sex: Female

DRUGS (2)
  1. LUPRON DEPOT [Suspect]
     Route: 050
     Dates: start: 20100408, end: 20100408
  2. LUPRON DEPOT [Suspect]
     Indication: UTERINE LEIOMYOMA
     Dosage: DOESN'T KNOW
     Route: 050
     Dates: start: 20090901, end: 20090901

REACTIONS (4)
  - MENORRHAGIA [None]
  - BLOOD PRESSURE INCREASED [None]
  - AMENORRHOEA [None]
  - HEADACHE [None]
